FAERS Safety Report 16008740 (Version 3)
Quarter: 2019Q2

REPORT INFORMATION
  Report Type: Spontaneous
  Country: US (occurrence: US)
  Receive Date: 20190226
  Receipt Date: 20190528
  Transmission Date: 20190711
  Serious: No
  Sender: FDA-Public Use
  Company Number: US-AMAG PHARMACEUTICALS, INC.-AMAG201900286

PATIENT
  Sex: Female

DRUGS (2)
  1. K-Y JELLY [Concomitant]
     Active Substance: CHLORHEXIDINE GLUCONATE
     Indication: DYSPAREUNIA
     Route: 065
  2. INTRAROSA [Suspect]
     Active Substance: PRASTERONE
     Indication: DYSPAREUNIA
     Dosage: 6.5 MG, QHS
     Route: 067
     Dates: start: 20180604

REACTIONS (1)
  - Underdose [Unknown]

NARRATIVE: CASE EVENT DATE: 2019
